FAERS Safety Report 14240693 (Version 3)
Quarter: 2017Q4

REPORT INFORMATION
  Report Type: Spontaneous
  Country: SK (occurrence: SK)
  Receive Date: 20171130
  Receipt Date: 20171222
  Transmission Date: 20180321
  Serious: Yes (Death)
  Sender: FDA-Public Use
  Company Number: SK-ELI_LILLY_AND_COMPANY-SK201711012394

PATIENT
  Sex: Female

DRUGS (1)
  1. ERBITUX [Suspect]
     Active Substance: CETUXIMAB
     Indication: SALIVARY GLAND CANCER
     Dosage: 300 MG, UNK
     Route: 065
     Dates: start: 20130702, end: 20130730

REACTIONS (2)
  - Off label use [Unknown]
  - Oncologic complication [Fatal]

NARRATIVE: CASE EVENT DATE: 20140122
